FAERS Safety Report 19057604 (Version 1)
Quarter: 2021Q1

REPORT INFORMATION
  Report Type: Spontaneous
  Country: US (occurrence: US)
  Receive Date: 20210325
  Receipt Date: 20210325
  Transmission Date: 20210420
  Serious: No
  Sender: FDA-Public Use
  Company Number: US-GUERBET-US-20200184

PATIENT
  Age: 25 Year
  Sex: Male

DRUGS (1)
  1. OPTIRAY 300 [Suspect]
     Active Substance: IOVERSOL
     Indication: COMPUTERISED TOMOGRAM HEAD
     Route: 042
     Dates: start: 20201125

REACTIONS (1)
  - Pruritus [Recovered/Resolved]

NARRATIVE: CASE EVENT DATE: 20201125
